FAERS Safety Report 22199077 (Version 1)
Quarter: 2023Q2

REPORT INFORMATION
  Report Type: Spontaneous
  Country: US (occurrence: US)
  Receive Date: 20230411
  Receipt Date: 20230411
  Transmission Date: 20230722
  Serious: No
  Sender: FDA-Public Use
  Company Number: US-JNJFOC-20230403349

PATIENT
  Sex: Male

DRUGS (2)
  1. RISPERDAL [Suspect]
     Active Substance: RISPERIDONE
     Indication: Attention deficit hyperactivity disorder
     Route: 065
  2. ADDERALL [Concomitant]
     Active Substance: AMPHETAMINE ASPARTATE\AMPHETAMINE SULFATE\DEXTROAMPHETAMINE SACCHARATE\DEXTROAMPHETAMINE SULFATE
     Indication: Attention deficit hyperactivity disorder
     Route: 065

REACTIONS (10)
  - Eating disorder [Unknown]
  - Educational problem [Unknown]
  - Adverse event [Unknown]
  - Loss of personal independence in daily activities [Unknown]
  - Frustration tolerance decreased [Unknown]
  - Gynaecomastia [Unknown]
  - Feeling abnormal [Unknown]
  - Sleep disorder [Unknown]
  - Anxiety [Unknown]
  - Off label use [Unknown]
